FAERS Safety Report 21550616 (Version 1)
Quarter: 2022Q4

REPORT INFORMATION
  Report Type: Spontaneous
  Country: DE (occurrence: DE)
  Receive Date: 20221103
  Receipt Date: 20221103
  Transmission Date: 20230113
  Serious: Yes (Hospitalization)
  Sender: FDA-Public Use
  Company Number: DE-ADRED-04602-02

PATIENT
  Age: 81 Year
  Sex: Male
  Weight: 108 kg

DRUGS (7)
  1. IBUPROFEN [Suspect]
     Active Substance: IBUPROFEN
     Indication: Product used for unknown indication
     Dosage: 600 MILLIGRAM, NEED, TABLET
     Route: 048
  2. TORSEMIDE [Suspect]
     Active Substance: TORSEMIDE
     Indication: Product used for unknown indication
     Dosage: 5 MILLIGRAM
     Route: 048
  3. HYDROCHLOROTHIAZIDE\RAMIPRIL [Suspect]
     Active Substance: HYDROCHLOROTHIAZIDE\RAMIPRIL
     Indication: Product used for unknown indication
     Dosage: 25|5 MG, 1-0-0-0, TABLET
     Route: 048
  4. ASPIRIN [Suspect]
     Active Substance: ASPIRIN
     Indication: Product used for unknown indication
     Dosage: 100 MILLIGRAM
     Route: 048
  5. PREDNISOLONE [Concomitant]
     Active Substance: PREDNISOLONE
     Dosage: 5 MG, 1-0-0-0, TABLET
     Route: 048
  6. NALOXONE HYDROCHLORIDE\TILIDINE HYDROCHLORIDE [Concomitant]
     Active Substance: NALOXONE HYDROCHLORIDE\TILIDINE HYDROCHLORIDE
     Dosage: 8|100 MG, 1-0-1-0, RETARD-TABLET
     Route: 048
  7. QUETIAPINE [Concomitant]
     Active Substance: QUETIAPINE
     Dosage: 25 MG, 0-0-0-1, TABLET
     Route: 048

REACTIONS (6)
  - Melaena [Unknown]
  - Upper gastrointestinal haemorrhage [Unknown]
  - Condition aggravated [Unknown]
  - Haematochezia [Unknown]
  - Acute kidney injury [Unknown]
  - Oedema peripheral [Unknown]
